FAERS Safety Report 4349182-0 (Version None)
Quarter: 2004Q2

REPORT INFORMATION
  Report Type: 
  Country: None (occurrence: None)
  Receive Date: 20040427
  Receipt Date: 20030610
  Transmission Date: 20050107
  Serious: Yes (Other)
  Sender: FDA-Public Use
  Company Number: 000565

PATIENT

DRUGS (4)
  1. ZEVALIN [Suspect]
     Indication: NON-HODGKIN'S LYMPHOMA
     Dosage: 250 MG/M2, RITUXAN DOSE 1, INTRAVENOUS; 250 MG/M2, RITUXAN DOSE 2, INTRAVENOUS
     Route: 042
     Dates: start: 20030116, end: 20030116
  2. ZEVALIN [Suspect]
     Indication: NON-HODGKIN'S LYMPHOMA
     Dosage: 250 MG/M2, RITUXAN DOSE 1, INTRAVENOUS; 250 MG/M2, RITUXAN DOSE 2, INTRAVENOUS
     Route: 042
     Dates: start: 20030123, end: 20030123
  3. ZEVALIN [Suspect]
     Dosage: 0.4 MCI/KG, Y-[90] ZEVALIN, INTRAVENOUS; 5 MCI, IN-[111] ZEVALIN, INTRAVENOUS
     Route: 042
     Dates: start: 20030116, end: 20030116
  4. ZEVALIN [Suspect]
     Dosage: 0.4 MCI/KG, Y-[90] ZEVALIN, INTRAVENOUS; 5 MCI, IN-[111] ZEVALIN, INTRAVENOUS
     Route: 042
     Dates: start: 20030123, end: 20030123

REACTIONS (2)
  - NEUTROPENIA [None]
  - THROMBOCYTOPENIA [None]
